FAERS Safety Report 12969831 (Version 1)
Quarter: 2016Q4

REPORT INFORMATION
  Report Type: Report from Study
  Country: CO (occurrence: CO)
  Receive Date: 20161123
  Receipt Date: 20161123
  Transmission Date: 20170207
  Serious: Yes (Other)
  Sender: FDA-Public Use
  Company Number: CO-ELI_LILLY_AND_COMPANY-CO201611005882

PATIENT
  Age: 49 Year
  Sex: Female
  Weight: 54 kg

DRUGS (1)
  1. CETUXIMAB [Suspect]
     Active Substance: CETUXIMAB
     Indication: COLORECTAL CANCER METASTATIC
     Dosage: 400 MG/M2, OTHER
     Route: 042
     Dates: start: 20161014

REACTIONS (4)
  - Headache [Recovering/Resolving]
  - Apathy [Recovering/Resolving]
  - Chest pain [Recovering/Resolving]
  - Skin lesion [Recovering/Resolving]

NARRATIVE: CASE EVENT DATE: 20161108
